FAERS Safety Report 5816617-3 (Version None)
Quarter: 2008Q3

REPORT INFORMATION
  Report Type: 
  Country: None (occurrence: None)
  Receive Date: 20080721
  Receipt Date: 20080710
  Transmission Date: 20090109
  Serious: Yes (Hospitalization)
  Sender: FDA-Public Use
  Company Number: US-PFIZER INC-2007044388

PATIENT
  Sex: Male
  Weight: 85.7 kg

DRUGS (15)
  1. SUTENT [Suspect]
     Indication: RENAL CANCER METASTATIC
     Route: 048
     Dates: start: 20070509
  2. GEMCITABINE [Suspect]
     Indication: RENAL CANCER METASTATIC
     Dosage: DAILY DOSE:2114MG-FREQ:FREQUENCY: QD; INTERVAL: DAYS 1 AND 8
     Route: 042
  3. ATIVAN [Concomitant]
     Indication: INSOMNIA
     Route: 048
  4. ATIVAN [Concomitant]
     Indication: ANXIETY
  5. PERCOCET [Concomitant]
     Indication: PAIN
     Dosage: TEXT:1-2 TABS-FREQ:PRN
     Route: 048
     Dates: start: 20070201
  6. ASCORBIC ACID [Concomitant]
     Indication: SUPPLEMENTATION THERAPY
     Route: 048
     Dates: start: 20070411
  7. VITAMIN B-12 [Concomitant]
     Indication: SUPPLEMENTATION THERAPY
     Route: 048
     Dates: start: 20070411
  8. FERROUS SULFATE TAB [Concomitant]
     Indication: SUPPLEMENTATION THERAPY
     Route: 048
     Dates: start: 20070411
  9. TYLENOL [Concomitant]
     Indication: PYREXIA
     Route: 048
     Dates: start: 20070411
  10. PROCRIT [Concomitant]
     Indication: HAEMOGLOBIN DECREASED
     Dosage: TEXT:40,000 UNITS
     Route: 048
     Dates: start: 20070412
  11. SENOKOT [Concomitant]
     Indication: CONSTIPATION
     Dosage: TEXT:1-2 TABS-FREQ:PRN
     Route: 048
     Dates: start: 20070401
  12. IBUPROFEN [Concomitant]
     Indication: PAIN
     Route: 048
     Dates: start: 20070401
  13. TUMS [Concomitant]
     Indication: GASTROOESOPHAGEAL REFLUX DISEASE
     Dosage: FREQ:PRN
     Route: 048
     Dates: start: 20070515
  14. TUMS [Concomitant]
     Indication: BLOOD CALCIUM DECREASED
  15. ZOFRAN [Concomitant]
     Route: 048

REACTIONS (1)
  - PYREXIA [None]
